FAERS Safety Report 16673633 (Version 1)
Quarter: 2019Q3

REPORT INFORMATION
  Report Type: Spontaneous
  Country: CN (occurrence: CN)
  Receive Date: 20190806
  Receipt Date: 20190806
  Transmission Date: 20191004
  Serious: Yes (Other)
  Sender: FDA-Public Use
  Company Number: CN-009507513-1907CHN016784

PATIENT
  Age: 90 Year
  Sex: Female
  Weight: 80 kg

DRUGS (2)
  1. TIENAM [Suspect]
     Active Substance: CILASTATIN SODIUM\IMIPENEM
     Indication: LIVER ABSCESS
     Dosage: 1 GRAM, Q8H; FORMULATION: POWDER FOR INJECTION
     Route: 041
     Dates: start: 20190528, end: 20190531
  2. TIENAM [Suspect]
     Active Substance: CILASTATIN SODIUM\IMIPENEM
     Indication: LUNG INFECTION

REACTIONS (3)
  - Aphasia [Recovering/Resolving]
  - Depressed level of consciousness [Recovering/Resolving]
  - Tic [Recovering/Resolving]

NARRATIVE: CASE EVENT DATE: 20190531
